FAERS Safety Report 6327186-6 (Version None)
Quarter: 2009Q3

REPORT INFORMATION
  Report Type: 
  Country: None (occurrence: None)
  Receive Date: 20090825
  Receipt Date: 20090817
  Transmission Date: 20100115
  Serious: Yes (Disabling)
  Sender: FDA-Public Use
  Company Number: CA-ASTRAZENECA-2009SE08415

PATIENT
  Age: 70 Year
  Sex: Female

DRUGS (4)
  1. CRESTOR [Suspect]
     Route: 048
     Dates: start: 20080101
  2. AVALIDE [Concomitant]
  3. PREVACID [Concomitant]
  4. ZOLOFT [Concomitant]

REACTIONS (3)
  - ABASIA [None]
  - DISABILITY [None]
  - SLEEP DISORDER [None]
